FAERS Safety Report 17158446 (Version 1)
Quarter: 2019Q4

REPORT INFORMATION
  Report Type: Spontaneous
  Country: US (occurrence: US)
  Receive Date: 20191216
  Receipt Date: 20191216
  Transmission Date: 20200122
  Serious: Yes (Hospitalization)
  Sender: FDA-Public Use
  Company Number: US-MYLANLABS-2019M1123752

PATIENT
  Age: 7 Year
  Sex: Female
  Weight: 31 kg

DRUGS (1)
  1. PALIPERIDONE. [Suspect]
     Active Substance: PALIPERIDONE
     Indication: PRODUCT USED FOR UNKNOWN INDICATION
     Dosage: 3 MILLIGRAM, QD
     Route: 048

REACTIONS (8)
  - Sinus tachycardia [Recovering/Resolving]
  - Product administered to patient of inappropriate age [Recovering/Resolving]
  - Electrocardiogram QT prolonged [Recovered/Resolved]
  - Product dispensing error [Recovering/Resolving]
  - Flushing [Recovered/Resolved]
  - Dystonia [Recovered/Resolved]
  - Accidental exposure to product [Recovering/Resolving]
  - Mydriasis [Recovered/Resolved]
